FAERS Safety Report 25759543 (Version 1)
Quarter: 2025Q3

REPORT INFORMATION
  Report Type: Spontaneous
  Country: CN (occurrence: CN)
  Receive Date: 20250904
  Receipt Date: 20250904
  Transmission Date: 20251021
  Serious: Yes (Hospitalization, Other)
  Sender: Medicap Laboratories
  Company Number: CN-Medicap-000042

PATIENT
  Age: 16 Year
  Sex: Male

DRUGS (6)
  1. INSULIN NOS [Suspect]
     Active Substance: INSULIN NOS
     Indication: Diabetic retinopathy
     Route: 065
  2. INSULIN NOS [Suspect]
     Active Substance: INSULIN NOS
     Indication: Neuropathy peripheral
     Route: 065
  3. INSULIN NOS [Suspect]
     Active Substance: INSULIN NOS
     Indication: Diabetes mellitus
     Route: 065
  4. METFORMIN [Suspect]
     Active Substance: METFORMIN HYDROCHLORIDE
     Indication: Diabetes mellitus
     Route: 065
  5. METFORMIN [Suspect]
     Active Substance: METFORMIN HYDROCHLORIDE
     Indication: Diabetic retinopathy
     Route: 065
  6. METFORMIN [Suspect]
     Active Substance: METFORMIN HYDROCHLORIDE
     Indication: Neuropathy peripheral
     Route: 065

REACTIONS (2)
  - Diabetes mellitus inadequate control [Recovered/Resolved]
  - Product dose omission issue [Recovered/Resolved]
